FAERS Safety Report 13866272 (Version 1)
Quarter: 2017Q3

REPORT INFORMATION
  Report Type: Spontaneous
  Country: US (occurrence: US)
  Receive Date: 20170814
  Receipt Date: 20170814
  Transmission Date: 20171127
  Serious: No
  Sender: FDA-Public Use
  Company Number: US-ROCHE-1881572

PATIENT
  Age: 63 Year
  Sex: Female

DRUGS (4)
  1. METHOTREXATE SODIUM. [Concomitant]
     Active Substance: METHOTREXATE SODIUM
  2. FOLIC ACID. [Concomitant]
     Active Substance: FOLIC ACID
  3. NONI [Concomitant]
  4. ACTEMRA [Suspect]
     Active Substance: TOCILIZUMAB
     Indication: RHEUMATOID ARTHRITIS
     Dosage: 162MG/0.9ML
     Route: 058

REACTIONS (3)
  - Rheumatoid arthritis [Unknown]
  - Injection site swelling [Unknown]
  - Injection site pain [Unknown]
